FAERS Safety Report 8987322 (Version 2)
Quarter: 2012Q4

REPORT INFORMATION
  Report Type: 
  Country: IT (occurrence: IT)
  Receive Date: 20121226
  Receipt Date: 20121228
  Transmission Date: 20130627
  Serious: Yes (Other)
  Sender: FDA-Public Use
  Company Number: IT-PFIZER INC-2012324828

PATIENT
  Age: 58 Year
  Sex: Female

DRUGS (4)
  1. OMEPRAZOLE [Suspect]
     Indication: ACID REFLUX (ESOPHAGEAL)
     Dosage: 40 mg,1 D
     Route: 065
  2. PANTOPRAZOLE [Suspect]
     Indication: ACID REFLUX (ESOPHAGEAL)
     Dosage: 40 mg,1 D
     Route: 065
  3. FUROSEMIDE [Concomitant]
     Indication: HYPERTENSION
     Dosage: UNK
     Route: 065
  4. BISOPROLOL [Concomitant]
     Indication: HYPERTENSION
     Dosage: UNK
     Route: 065

REACTIONS (4)
  - Hypoparathyroidism [Recovered/Resolved]
  - Tetany [Recovered/Resolved]
  - Hypomagnesaemia [Recovered/Resolved]
  - Hypocalcaemia [Recovered/Resolved]
